FAERS Safety Report 8975199 (Version 1)
Quarter: 2012Q4

REPORT INFORMATION
  Report Type: 
  Country: BE (occurrence: BE)
  Receive Date: 20121219
  Receipt Date: 20121219
  Transmission Date: 20130627
  Serious: Yes (Hospitalization)
  Sender: FDA-Public Use
  Company Number: BE-UCBSA-073242

PATIENT
  Sex: Female

DRUGS (1)
  1. VIMPAT [Suspect]
     Dosage: DAILY DOSE: 2800 MG ; 14 TABLETS OF 200MG
     Route: 048

REACTIONS (3)
  - Pneumonia aspiration [Unknown]
  - Depressed level of consciousness [Unknown]
  - Intentional overdose [Unknown]
